FAERS Safety Report 10459180 (Version 1)
Quarter: 2014Q3

REPORT INFORMATION
  Report Type: Spontaneous
  Country: SK (occurrence: SK)
  Receive Date: 20140917
  Receipt Date: 20140917
  Transmission Date: 20150326
  Serious: Yes (Other)
  Sender: FDA-Public Use
  Company Number: SK-ACTAVIS-2014-19822

PATIENT
  Age: 60 Year
  Sex: Male

DRUGS (1)
  1. IBUPROFEN. [Suspect]
     Active Substance: IBUPROFEN
     Indication: PAIN
     Dosage: 4000 MG, DAILY (10 X 400MG TABLETS)
     Route: 065

REACTIONS (2)
  - Overdose [Unknown]
  - Erosive oesophagitis [Unknown]
